FAERS Safety Report 8133818-2 (Version None)
Quarter: 2012Q1

REPORT INFORMATION
  Report Type: 
  Country: None (occurrence: None)
  Receive Date: 20120213
  Receipt Date: 20120213
  Transmission Date: 20120608
  Serious: Yes (Other)
  Sender: FDA-Public Use
  Company Number: None

PATIENT
  Age: 39 Year
  Sex: Female
  Weight: 71.214 kg

DRUGS (1)
  1. 12 HOUR ALLERGY STRENGTH [Suspect]
     Indication: SEASONAL ALLERGY
     Dosage: 1 PILL
     Route: 049

REACTIONS (3)
  - ECONOMIC PROBLEM [None]
  - DRUG WITHDRAWAL SYNDROME [None]
  - PRURITUS [None]
